FAERS Safety Report 10074336 (Version 1)
Quarter: 2014Q2

REPORT INFORMATION
  Report Type: Spontaneous
  Country: US (occurrence: US)
  Receive Date: 20140411
  Receipt Date: 20140411
  Transmission Date: 20141212
  Serious: No
  Sender: FDA-Public Use
  Company Number: US-SANOFI-AVENTIS-2013SA052417

PATIENT
  Age: 38 Year
  Sex: Male

DRUGS (3)
  1. ALLEGRA D [Suspect]
     Indication: SEASONAL ALLERGY
     Route: 048
     Dates: start: 201303
  2. ZANTAC [Concomitant]
  3. CLARITIN [Concomitant]

REACTIONS (1)
  - Medication residue present [Unknown]
